FAERS Safety Report 21935622 (Version 2)
Quarter: 2023Q1

REPORT INFORMATION
  Report Type: Spontaneous
  Country: US (occurrence: US)
  Receive Date: 20230201
  Receipt Date: 20230306
  Transmission Date: 20230417
  Serious: No
  Sender: FDA-Public Use
  Company Number: US-SA-SAC20230131000636

PATIENT
  Age: 77 Year
  Sex: Male
  Weight: 124.72 kg

DRUGS (2)
  1. DUPIXENT [Suspect]
     Active Substance: DUPILUMAB
     Indication: Eczema
     Dosage: 300 MG, QOW
     Route: 058
     Dates: end: 202301
  2. POMALYST [Concomitant]
     Active Substance: POMALIDOMIDE

REACTIONS (9)
  - Infection [Not Recovered/Not Resolved]
  - Constipation [Unknown]
  - Fatigue [Unknown]
  - Dyspnoea [Unknown]
  - Nasal congestion [Unknown]
  - Full blood count decreased [Unknown]
  - Sinusitis [Unknown]
  - Rash pruritic [Unknown]
  - Rash [Recovered/Resolved]

NARRATIVE: CASE EVENT DATE: 20230101
